FAERS Safety Report 8321394-0 (Version None)
Quarter: 2012Q2

REPORT INFORMATION
  Report Type: 
  Country: None (occurrence: None)
  Receive Date: 20120430
  Receipt Date: 20120419
  Transmission Date: 20120825
  Serious: Yes (Hospitalization, Other)
  Sender: FDA-Public Use
  Company Number: JP-ASTELLAS-2012US002475

PATIENT
  Sex: Female
  Weight: 60 kg

DRUGS (9)
  1. GEMCITABINE [Suspect]
     Dosage: 800 MG/M2, UID/QD
     Route: 041
     Dates: start: 20120111, end: 20120111
  2. GEMCITABINE [Suspect]
     Dosage: 800 MG/M2, WEEKLY
     Route: 041
     Dates: start: 20120116
  3. GEMCITABINE [Suspect]
     Dosage: 800 MG/M2, WEEKLY
     Route: 041
     Dates: start: 20120116, end: 20120123
  4. URSO 250 [Concomitant]
     Indication: PRODUCT USED FOR UNKNOWN INDICATION
     Dosage: 600 MG, UID/QD
     Route: 048
     Dates: start: 20110926
  5. GEMCITABINE [Suspect]
     Indication: ADENOCARCINOMA PANCREAS
     Dosage: 1000 MG/M2, Q2W
     Route: 041
     Dates: start: 20110822, end: 20111003
  6. PROHEPARUM [Concomitant]
     Indication: PRODUCT USED FOR UNKNOWN INDICATION
     Dosage: 3 DF, UID/QD
     Route: 048
     Dates: start: 20110926
  7. ERLOTINIB HYDROCHLORIDE [Suspect]
     Indication: ADENOCARCINOMA PANCREAS
     Dosage: 100 MG, UID/QD
     Route: 048
     Dates: start: 20110822, end: 20111021
  8. ERLOTINIB HYDROCHLORIDE [Suspect]
     Dosage: 50 MG, UID/QD
     Route: 048
     Dates: start: 20111031
  9. GEMCITABINE [Suspect]
     Dosage: 800 MG/M2, Q2W
     Route: 041
     Dates: start: 20111017, end: 20111226

REACTIONS (8)
  - ANAEMIA [None]
  - CELLULITIS [None]
  - UNEVALUABLE EVENT [None]
  - HEPATIC FUNCTION ABNORMAL [None]
  - NEUTROPHIL COUNT DECREASED [None]
  - ACNE [None]
  - MALAISE [None]
  - NEUTROPENIA [None]
